FAERS Safety Report 21703196 (Version 1)
Quarter: 2022Q4

REPORT INFORMATION
  Report Type: Spontaneous
  Country: GB (occurrence: GB)
  Receive Date: 20221209
  Receipt Date: 20221209
  Transmission Date: 20230112
  Serious: Yes (Hospitalization)
  Sender: FDA-Public Use
  Company Number: GB-MACLEODS PHARMA UK LTD-MAC2022038284

PATIENT

DRUGS (1)
  1. CELECOXIB [Suspect]
     Active Substance: CELECOXIB
     Indication: Product used for unknown indication
     Dosage: UNK (TABLET FOR 2 YEARS)
     Route: 065

REACTIONS (2)
  - Fall [Unknown]
  - Gait disturbance [Unknown]
